FAERS Safety Report 13142871 (Version 1)
Quarter: 2017Q1

REPORT INFORMATION
  Report Type: Spontaneous
  Country: IT (occurrence: IT)
  Receive Date: 20170124
  Receipt Date: 20170124
  Transmission Date: 20170428
  Serious: Yes (Other)
  Sender: FDA-Public Use
  Company Number: IT-TEVA-731200ACC

PATIENT
  Age: 40 Year
  Sex: Female

DRUGS (4)
  1. VINCRISTINA TEVA ITALIA -1 MG/ML SOLUZIONE INIETTABILE [Suspect]
     Active Substance: VINCRISTINE SULFATE
     Indication: OLIGOASTROCYTOMA
     Route: 041
     Dates: start: 20160630, end: 20160912
  2. NATULAN - 50 MG CAPSULE RIGIDE [Suspect]
     Active Substance: PROCARBAZINE HYDROCHLORIDE
     Indication: OLIGOASTROCYTOMA
     Route: 048
     Dates: start: 20160707, end: 20161002
  3. ONDANSETRON [Concomitant]
     Active Substance: ONDANSETRON
     Indication: PRODUCT USED FOR UNKNOWN INDICATION
  4. LOMUSTINE. [Suspect]
     Active Substance: LOMUSTINE
     Indication: OLIGOASTROCYTOMA
     Route: 048
     Dates: start: 20160630, end: 20160912

REACTIONS (2)
  - Leukopenia [Recovered/Resolved]
  - Febrile neutropenia [Recovered/Resolved]

NARRATIVE: CASE EVENT DATE: 20161031
